FAERS Safety Report 5575047-2 (Version None)
Quarter: 2007Q4

REPORT INFORMATION
  Report Type: 
  Country: None (occurrence: None)
  Receive Date: 20071221
  Receipt Date: 20071221
  Transmission Date: 20080405
  Serious: Yes (Other)
  Sender: FDA-Public Use
  Company Number: None

PATIENT
  Age: 53 Year
  Sex: Female
  Weight: 72.5755 kg

DRUGS (2)
  1. LYRICA [Suspect]
     Indication: LIMB OPERATION
     Dosage: 1 PILL TWICE PO
     Route: 048
     Dates: start: 20071017, end: 20071018
  2. LYRICA [Suspect]
     Indication: NEURALGIA
     Dosage: 1 PILL TWICE PO
     Route: 048
     Dates: start: 20071017, end: 20071018

REACTIONS (4)
  - BLISTER [None]
  - NASAL DISORDER [None]
  - RESPIRATORY DISORDER [None]
  - VISION BLURRED [None]
